FAERS Safety Report 10082266 (Version 1)
Quarter: 2014Q2

REPORT INFORMATION
  Report Type: Spontaneous
  Country: US (occurrence: US)
  Receive Date: 20140416
  Receipt Date: 20140416
  Transmission Date: 20141212
  Serious: No
  Sender: FDA-Public Use
  Company Number: US-TEVA-475874USA

PATIENT
  Age: 26 Year
  Sex: Female
  Weight: 44.49 kg

DRUGS (2)
  1. PARAGARD 380A [Suspect]
     Indication: CONTRACEPTION
     Route: 015
     Dates: start: 20140227, end: 20140402
  2. PARAGARD 380A [Suspect]
     Route: 015
     Dates: start: 20140402

REACTIONS (3)
  - Vaginal haemorrhage [Recovered/Resolved]
  - Device expulsion [Recovered/Resolved]
  - Metrorrhagia [Unknown]
